FAERS Safety Report 7222927-8 (Version None)
Quarter: 2011Q1

REPORT INFORMATION
  Report Type: 
  Country: None (occurrence: None)
  Receive Date: 20110112
  Receipt Date: 20110105
  Transmission Date: 20110831
  Serious: Yes (Death)
  Sender: FDA-Public Use
  Company Number: ES-JNJFOC-20110101494

PATIENT
  Age: 49 Year
  Sex: Male

DRUGS (2)
  1. REMICADE [Suspect]
     Dosage: 22ND DOSE
     Route: 042
  2. REMICADE [Suspect]
     Indication: PSORIASIS
     Route: 042

REACTIONS (1)
  - COMPLETED SUICIDE [None]
